FAERS Safety Report 5266036-6 (Version None)
Quarter: 2007Q1

REPORT INFORMATION
  Report Type: 
  Country: None (occurrence: None)
  Receive Date: 20070315
  Receipt Date: 20070302
  Transmission Date: 20070707
  Serious: Yes (Other)
  Sender: FDA-Public Use
  Company Number: PHMT2007CA00787

PATIENT
  Age: 54 Year
  Sex: Female

DRUGS (5)
  1. COMBIPATCH [Suspect]
     Dosage: UNK, UNK
     Route: 062
     Dates: start: 20070101
  2. HYDROCHLOROTHIAZIDE [Concomitant]
     Dosage: 12.5 MG
  3. VITAMIN B COMPLEX CAP [Concomitant]
  4. OMEGA [Concomitant]
     Dosage: OMEGA COMPLEX
  5. CALCIUM [Concomitant]

REACTIONS (2)
  - HAEMORRHAGE [None]
  - METRORRHAGIA [None]
